FAERS Safety Report 8444616-4 (Version None)
Quarter: 2012Q2

REPORT INFORMATION
  Report Type: 
  Country: None (occurrence: None)
  Receive Date: 20120618
  Receipt Date: 20120612
  Transmission Date: 20120825
  Serious: Yes (Other)
  Sender: FDA-Public Use
  Company Number: US-PFIZER INC-2012142012

PATIENT
  Sex: Female
  Weight: 77.098 kg

DRUGS (7)
  1. EFFEXOR XR [Suspect]
     Dosage: 300 MG, DAILY
     Route: 048
  2. EFFEXOR XR [Suspect]
     Indication: DEPRESSION
     Dosage: UNK
     Route: 048
     Dates: start: 19990101
  3. NORCO [Concomitant]
     Indication: PAIN
     Dosage: 20/650 MG, 3X/DAY
  4. MORPHINE [Concomitant]
     Indication: PAIN
     Dosage: 120MG TWO TIMES A DAY AND 15MG DAILY
  5. ADDERALL 5 [Concomitant]
     Indication: CHRONIC FATIGUE SYNDROME
     Dosage: 40 MG, DAILY
  6. DOXEPIN [Concomitant]
     Indication: DEPRESSION
     Dosage: 100 MG, DAILY
  7. KEFLEX [Concomitant]
     Indication: INFECTION
     Dosage: 500 MG, 4X/DAY

REACTIONS (6)
  - LOCALISED INFECTION [None]
  - GASTROOESOPHAGEAL REFLUX DISEASE [None]
  - LIMB OPERATION [None]
  - FOOT OPERATION [None]
  - HIP ARTHROPLASTY [None]
  - PERNICIOUS ANAEMIA [None]
